FAERS Safety Report 9803447 (Version 1)
Quarter: 2014Q1

REPORT INFORMATION
  Report Type: Not Available
  Country: FR (occurrence: FR)
  Receive Date: 20140108
  Receipt Date: 20140108
  Transmission Date: 20141002
  Serious: Yes (Hospitalization)
  Sender: FDA-Public Use
  Company Number: FR-NAPPMUNDI-GBR-2013-0016790

PATIENT
  Age: 88 Year
  Sex: Male
  Weight: 61 kg

DRUGS (16)
  1. OXYCONTIN LP 5 MG, COMPRIME PELLICULE A LIBERATION PROLONGEE [Suspect]
     Indication: PAIN
     Dosage: UNK
     Route: 048
     Dates: start: 20130927, end: 20131003
  2. OXYNORM 5 MG, GELULE [Suspect]
     Indication: PAIN
     Dosage: UNK
     Route: 048
     Dates: start: 20130927, end: 20131003
  3. ZYPREXA [Concomitant]
     Dosage: 5 MG, DAILY
     Dates: end: 20130918
  4. OSTRAM-VIT. D3 [Concomitant]
     Dosage: UNK, DAILY
     Route: 048
  5. SERESTA [Concomitant]
     Dosage: 50 MG, UNK
     Route: 048
  6. MONTELUKAST                        /01362602/ [Concomitant]
     Dosage: 10 MG, DAILY
     Route: 048
  7. EXELON                             /01383201/ [Concomitant]
     Dosage: 9.5 MG, DAILY
     Route: 062
  8. SYMBICORT [Concomitant]
     Dosage: UNK, BID
  9. DAFALGAN CODEINE [Concomitant]
     Dosage: UNK, BID
  10. ARTOTEC [Concomitant]
     Dosage: UNK, DAILY
  11. FLECTOR                            /00372302/ [Concomitant]
     Dosage: UNK, TID
  12. ZOPICLONE [Concomitant]
     Dosage: 1 UNK, DAILY
  13. VALIUM                             /00017001/ [Concomitant]
     Dosage: UNK, DAILY
  14. OLANZAPINE [Concomitant]
     Dosage: UNK, DAILY
     Route: 048
     Dates: end: 20130918
  15. MOVICOL                            /01625101/ [Concomitant]
     Dosage: 2 DF, BID
  16. GABAPENTIN [Concomitant]
     Dosage: 2 DF, TID

REACTIONS (2)
  - Pneumonia aspiration [Recovered/Resolved]
  - Somnolence [Recovered/Resolved]
